FAERS Safety Report 11144608 (Version 1)
Quarter: 2015Q2

REPORT INFORMATION
  Report Type: Spontaneous
  Country: US (occurrence: None)
  Receive Date: 20150526
  Receipt Date: 20150526
  Transmission Date: 20150821
  Serious: No
  Sender: FDA-Public Use
  Company Number: None

PATIENT
  Age: 28 Year
  Sex: Female
  Weight: 92.53 kg

DRUGS (2)
  1. MIRENA [Suspect]
     Active Substance: LEVONORGESTREL
     Indication: CONTRACEPTION
     Dosage: VAGINAL
     Route: 067
  2. MONISTAT 3 [Concomitant]
     Active Substance: MICONAZOLE NITRATE

REACTIONS (7)
  - Haemorrhage [None]
  - Amenorrhoea [None]
  - No therapeutic response [None]
  - Vulvovaginal pruritus [None]
  - Bacterial vaginosis [None]
  - Genital lesion [None]
  - Muscle spasms [None]

NARRATIVE: CASE EVENT DATE: 20121122
